FAERS Safety Report 6632155-2 (Version None)
Quarter: 2010Q1

REPORT INFORMATION
  Report Type: 
  Country: None (occurrence: None)
  Receive Date: 20100312
  Receipt Date: 20100129
  Transmission Date: 20100710
  Serious: No
  Sender: FDA-Public Use
  Company Number: US-ABBOTT-10P-163-0623666-00

PATIENT
  Sex: Female
  Weight: 61.29 kg

DRUGS (12)
  1. ERYTHROMYCIN [Suspect]
     Indication: DYSPEPSIA
     Dates: start: 20091201, end: 20091201
  2. ERYTHROMYCIN [Suspect]
     Dates: start: 20100129, end: 20100129
  3. METFORMIN HCL [Concomitant]
     Indication: DIABETES MELLITUS
  4. LEVOTHYROXINE [Concomitant]
     Indication: THYROID DISORDER
  5. CRESTOR [Concomitant]
     Indication: DRUG USE FOR UNKNOWN INDICATION
  6. OXYBUTYNIN [Concomitant]
     Indication: DRUG USE FOR UNKNOWN INDICATION
  7. VIT D TCVS [Concomitant]
     Indication: DRUG USE FOR UNKNOWN INDICATION
  8. VIT B12 [Concomitant]
     Indication: DRUG USE FOR UNKNOWN INDICATION
  9. FERROUS SULFATE TAB [Concomitant]
     Indication: DRUG USE FOR UNKNOWN INDICATION
  10. FISH OIL PILL [Concomitant]
     Indication: DRUG USE FOR UNKNOWN INDICATION
  11. VISION FORMULA VIT [Concomitant]
     Indication: DRUG USE FOR UNKNOWN INDICATION
  12. PRILOSEC [Concomitant]
     Indication: DRUG USE FOR UNKNOWN INDICATION

REACTIONS (1)
  - NAUSEA [None]
